APPROVED DRUG PRODUCT: SUPRANE
Active Ingredient: DESFLURANE
Strength: 100%
Dosage Form/Route: LIQUID;INHALATION
Application: N020118 | Product #001 | TE Code: AN
Applicant: BAXTER HEALTHCARE CORP
Approved: Sep 18, 1992 | RLD: Yes | RS: Yes | Type: RX